FAERS Safety Report 6925928-X (Version None)
Quarter: 2010Q3

REPORT INFORMATION
  Report Type: 
  Country: None (occurrence: None)
  Receive Date: 20100813
  Receipt Date: 20100813
  Transmission Date: 20110219
  Serious: No
  Sender: FDA-Public Use
  Company Number: None

PATIENT
  Age: 88 Year
  Sex: Male
  Weight: 74.5 kg

DRUGS (1)
  1. SULFAMETHOXAZOLE AND TRIMETHOPRIM [Suspect]
     Dosage: 1/2 TAB BID PO
     Route: 048
     Dates: start: 20091007, end: 20091007

REACTIONS (4)
  - CONJUNCTIVITIS [None]
  - EYE PRURITUS [None]
  - SKIN REACTION [None]
  - SWELLING [None]
